FAERS Safety Report 23384651 (Version 2)
Quarter: 2024Q3

REPORT INFORMATION
  Report Type: Spontaneous
  Country: US (occurrence: US)
  Receive Date: 20240109
  Receipt Date: 20240822
  Transmission Date: 20241017
  Serious: No
  Sender: PFIZER
  Company Number: US-PFIZER INC-202400004520

PATIENT
  Age: 64 Year
  Sex: Female

DRUGS (2)
  1. XELJANZ XR [Suspect]
     Active Substance: TOFACITINIB CITRATE
     Indication: Musculoskeletal disorder
     Dosage: 11 MG TAKE 1 TABLET DAILY
     Route: 048
     Dates: start: 2017
  2. RESTASIS [Concomitant]
     Active Substance: CYCLOSPORINE
     Dosage: 1 DROP EVERY 12 HOURS INTO AFFECTED EYE(S)
     Route: 047

REACTIONS (1)
  - Sinus congestion [Recovering/Resolving]

NARRATIVE: CASE EVENT DATE: 20231001
